FAERS Safety Report 23526184 (Version 1)
Quarter: 2024Q1

REPORT INFORMATION
  Report Type: Spontaneous
  Country: PL (occurrence: None)
  Receive Date: 20240215
  Receipt Date: 20240215
  Transmission Date: 20240410
  Serious: Yes (Hospitalization)
  Sender: FDA-Public Use
  Company Number: PL-ROCHE-3502743

PATIENT
  Age: 39 Year
  Sex: Female

DRUGS (1)
  1. OCREVUS [Suspect]
     Active Substance: OCRELIZUMAB
     Indication: Relapsing-remitting multiple sclerosis
     Dosage: THE NEXT SCHEDULED DOSE WAS RECEIVED BY HER ON 26/JAN/2024
     Route: 065
     Dates: start: 20230727

REACTIONS (1)
  - Acarodermatitis [Recovered/Resolved]

NARRATIVE: CASE EVENT DATE: 20240102
